FAERS Safety Report 23045310 (Version 3)
Quarter: 2023Q4

REPORT INFORMATION
  Report Type: Spontaneous
  Country: US (occurrence: US)
  Receive Date: 20231009
  Receipt Date: 20231130
  Transmission Date: 20240110
  Serious: No
  Sender: FDA-Public Use
  Company Number: US-BRISTOL-MYERS SQUIBB COMPANY-2023-142478

PATIENT
  Age: 76 Year
  Sex: Female
  Weight: 53.07 kg

DRUGS (1)
  1. POMALYST [Suspect]
     Active Substance: POMALIDOMIDE
     Indication: Plasma cell myeloma
     Dosage: FREQUENCY: 3W, 1W OFF
     Route: 048

REACTIONS (4)
  - Ocular hyperaemia [Unknown]
  - Rash [Recovered/Resolved]
  - Feeling abnormal [Unknown]
  - Nasopharyngitis [Unknown]
